FAERS Safety Report 10902034 (Version 1)
Quarter: 2015Q1

REPORT INFORMATION
  Report Type: Spontaneous
  Country: IN (occurrence: IN)
  Receive Date: 20150310
  Receipt Date: 20150310
  Transmission Date: 20150721
  Serious: Yes (Other)
  Sender: FDA-Public Use
  Company Number: PHHY2015IN027927

PATIENT
  Age: 15 Year
  Sex: Male

DRUGS (4)
  1. COTRIMOXAZOLE [Suspect]
     Active Substance: SULFAMETHOXAZOLE\TRIMETHOPRIM
     Indication: ACTINOMYCOSIS
     Dosage: 2 DF, BID
     Route: 065
  2. PENICILLIN CRYSTALLINE [Suspect]
     Active Substance: PENICILLIN G SODIUM
     Indication: ACTINOMYCOSIS
     Dosage: 1000000 IU, Q6H
     Route: 042
  3. GENTAMICIN. [Suspect]
     Active Substance: GENTAMICIN
     Indication: ACTINOMYCOSIS
     Dosage: 80 MG, Q12H
     Route: 042
  4. AMOXICILLIN-CLAVULANIC ACID [Suspect]
     Active Substance: AMOXICILLIN\CLAVULANIC ACID
     Indication: ACTINOMYCOSIS
     Dosage: 625 MG, TID
     Route: 048

REACTIONS (3)
  - Dermal sinus [Unknown]
  - Nodule [Unknown]
  - Drug ineffective [Unknown]
